FAERS Safety Report 26106861 (Version 1)
Quarter: 2025Q4

REPORT INFORMATION
  Report Type: Spontaneous
  Country: US (occurrence: US)
  Receive Date: 20251201
  Receipt Date: 20251201
  Transmission Date: 20260118
  Serious: Yes (Other)
  Sender: JOHNSON AND JOHNSON
  Company Number: US-JNJFOC-20251172187

PATIENT

DRUGS (2)
  1. STELARA [Suspect]
     Active Substance: USTEKINUMAB
     Indication: Product used for unknown indication
     Route: 058
  2. STELARA [Suspect]
     Active Substance: USTEKINUMAB

REACTIONS (11)
  - Mental impairment [Unknown]
  - Fatigue [Unknown]
  - Nausea [Unknown]
  - Muscular weakness [Unknown]
  - Insomnia [Unknown]
  - Malaise [Unknown]
  - Loss of personal independence in daily activities [Unknown]
  - Lethargy [Unknown]
  - Movement disorder [Unknown]
  - Decreased appetite [Unknown]
  - Injection related reaction [Unknown]
